FAERS Safety Report 14905262 (Version 1)
Quarter: 2018Q2

REPORT INFORMATION
  Report Type: Spontaneous
  Country: FR (occurrence: FR)
  Receive Date: 20180517
  Receipt Date: 20180517
  Transmission Date: 20180711
  Serious: Yes (Other)
  Sender: FDA-Public Use
  Company Number: FR-MERCK KGAA-2047955

PATIENT
  Age: 72 Year
  Sex: Female

DRUGS (1)
  1. NOVOTHYROX [Suspect]
     Active Substance: LEVOTHYROXINE SODIUM
     Indication: PRODUCT USED FOR UNKNOWN INDICATION

REACTIONS (17)
  - Asthenia [None]
  - Fatigue [None]
  - Facial bones fracture [None]
  - Fall [None]
  - Dizziness postural [None]
  - Impatience [None]
  - Hyperglycaemia [None]
  - Head injury [None]
  - Soft tissue injury [None]
  - Thinking abnormal [None]
  - Asocial behaviour [None]
  - Cognitive disorder [None]
  - Blood thyroid stimulating hormone increased [Recovered/Resolved]
  - Disturbance in attention [None]
  - Blood thyroid stimulating hormone decreased [Recovered/Resolved]
  - Hospitalisation [None]
  - Depression [None]

NARRATIVE: CASE EVENT DATE: 2017
